FAERS Safety Report 4432454-9 (Version None)
Quarter: 2004Q3

REPORT INFORMATION
  Report Type: 
  Country: None (occurrence: None)
  Receive Date: 20040820
  Receipt Date: 20040811
  Transmission Date: 20050211
  Serious: Yes (Hospitalization, Other)
  Sender: FDA-Public Use
  Company Number: HQWYE212912AUG04

PATIENT
  Age: 73 Year
  Sex: Female
  Weight: 67 kg

DRUGS (4)
  1. PROTONIX [Suspect]
     Indication: GASTROINTESTINAL HAEMORRHAGE
     Dosage: 80 MG BOLUS, THEN 8 MG/HOUR CONTINUOUS
     Dates: start: 20040809
  2. ZOSYN [Concomitant]
  3. EPOGEN [Concomitant]
  4. PHYTONADIONE [Concomitant]

REACTIONS (2)
  - DRUG INEFFECTIVE FOR UNAPPROVED INDICATION [None]
  - PERFORATED ULCER [None]
